FAERS Safety Report 13209195 (Version 2)
Quarter: 2017Q1

REPORT INFORMATION
  Report Type: Report from Study
  Country: US (occurrence: US)
  Receive Date: 20170209
  Receipt Date: 20170217
  Transmission Date: 20170428
  Serious: Yes (Other)
  Sender: FDA-Public Use
  Company Number: US-THERATECHNOLOGIES, INC.-TH-2017-00170

PATIENT

DRUGS (12)
  1. ASPIRIN. [Concomitant]
     Active Substance: ASPIRIN
  2. VALTREX [Concomitant]
     Active Substance: VALACYCLOVIR HYDROCHLORIDE
     Dosage: 1 G GRAM(S), UNK
  3. KLONOPIN [Concomitant]
     Active Substance: CLONAZEPAM
     Dosage: 1 MG MILLIGRAM(S), QD
  4. LIPITOR [Concomitant]
     Active Substance: ATORVASTATIN CALCIUM
  5. REMERON [Concomitant]
     Active Substance: MIRTAZAPINE
     Dosage: 15 MG MILLIGRAM(S), QD
  6. WELLBUTRIN [Concomitant]
     Active Substance: BUPROPION HYDROCHLORIDE
     Dosage: 200 MG MILLIGRAM(S), UNK
  7. EGRIFTA [Suspect]
     Active Substance: TESAMORELIN
     Dosage: UNK
     Dates: start: 201601, end: 201610
  8. HYDROCHLOROTHIAZIDE. [Concomitant]
     Active Substance: HYDROCHLOROTHIAZIDE
     Dosage: 25 MG MILLIGRAM(S), QD
  9. NORVIR [Concomitant]
     Active Substance: RITONAVIR
     Dosage: 100 MG MILLIGRAM(S), QD
  10. CRESTOR [Concomitant]
     Active Substance: ROSUVASTATIN CALCIUM
     Dosage: 10 MG MILLIGRAM(S), UNK
  11. INTELENCE [Concomitant]
     Active Substance: ETRAVIRINE
     Dosage: 200 MG MILLIGRAM(S), BID
  12. LEXAPRO [Concomitant]
     Active Substance: ESCITALOPRAM OXALATE

REACTIONS (1)
  - Diabetes mellitus [Recovering/Resolving]

NARRATIVE: CASE EVENT DATE: 201603
